FAERS Safety Report 21566877 (Version 1)
Quarter: 2022Q4

REPORT INFORMATION
  Report Type: Spontaneous
  Country: US (occurrence: None)
  Receive Date: 20221107
  Receipt Date: 20221107
  Transmission Date: 20230113
  Serious: No
  Sender: FDA-Public Use
  Company Number: None

PATIENT
  Sex: 0

DRUGS (1)
  1. TEMOVATE [Suspect]
     Active Substance: CLOBETASOL PROPIONATE

REACTIONS (1)
  - Drug ineffective [None]
